FAERS Safety Report 9029921 (Version 1)
Quarter: 2013Q1

REPORT INFORMATION
  Report Type: Spontaneous
  Country: US (occurrence: US)
  Receive Date: 20130124
  Receipt Date: 20130124
  Transmission Date: 20140127
  Serious: Yes (Other)
  Sender: FDA-Public Use
  Company Number: CHPA2013US001485

PATIENT
  Age: 84 Year
  Sex: Female

DRUGS (3)
  1. MYOFLEX ANALGESIC CREME [Suspect]
     Indication: LIGAMENT SPRAIN
     Dosage: UNK, TID
     Route: 061
  2. ZINC OXIDE [Concomitant]
     Indication: PAIN
     Route: 061
  3. ASPIRIN [Concomitant]
     Indication: PAIN
     Dosage: 2-6 PILLS AS NEEDED
     Route: 048

REACTIONS (4)
  - Meniscus injury [Not Recovered/Not Resolved]
  - Fall [Unknown]
  - Ligament sprain [Not Recovered/Not Resolved]
  - Expired drug administered [Unknown]
